FAERS Safety Report 7356504-5 (Version None)
Quarter: 2011Q1

REPORT INFORMATION
  Report Type: 
  Country: None (occurrence: None)
  Receive Date: 20110316
  Receipt Date: 20110302
  Transmission Date: 20110831
  Serious: Yes (Hospitalization)
  Sender: FDA-Public Use
  Company Number: PHHY2011CA17826

PATIENT
  Sex: Female

DRUGS (1)
  1. ACLASTA [Suspect]
     Indication: OSTEOPOROSIS
     Dosage: UNK
     Dates: start: 20100426

REACTIONS (4)
  - SLEEP DISORDER [None]
  - ARTERIAL OCCLUSIVE DISEASE [None]
  - MYALGIA [None]
  - PAIN IN EXTREMITY [None]
